FAERS Safety Report 23553442 (Version 1)
Quarter: 2024Q1

REPORT INFORMATION
  Report Type: Spontaneous
  Country: AU (occurrence: AU)
  Receive Date: 20240222
  Receipt Date: 20240222
  Transmission Date: 20240410
  Serious: Yes (Hospitalization, Other)
  Sender: FDA-Public Use
  Company Number: AU-BAYER-2024A023739

PATIENT
  Sex: Male

DRUGS (2)
  1. NUBEQA [Suspect]
     Active Substance: DAROLUTAMIDE
     Dosage: UNK
  2. NUBEQA [Suspect]
     Active Substance: DAROLUTAMIDE
     Dosage: ONE DOSE

REACTIONS (4)
  - Anaphylactic reaction [None]
  - Febrile neutropenia [None]
  - Rash [Recovered/Resolved]
  - Hypersensitivity [None]
